FAERS Safety Report 26012207 (Version 1)
Quarter: 2025Q4

REPORT INFORMATION
  Report Type: Spontaneous
  Country: EU (occurrence: EU)
  Receive Date: 20251107
  Receipt Date: 20251107
  Transmission Date: 20260117
  Serious: Yes (Life-Threatening)
  Sender: TEVA
  Company Number: None

PATIENT
  Age: 85 Year
  Sex: Female
  Weight: 59 kg

DRUGS (7)
  1. PACLITAXEL [Suspect]
     Active Substance: PACLITAXEL
     Indication: Endometrial cancer
     Dosage: 2 WEEKS/3?6 TREATMENTS
     Route: 042
     Dates: start: 20250801, end: 20250919
  2. LATANOPROST\TIMOLOL MALEATE [Suspect]
     Active Substance: LATANOPROST\TIMOLOL MALEATE
     Indication: Glaucoma
     Route: 065
     Dates: end: 20250925
  3. METOPIMAZINE [Suspect]
     Active Substance: METOPIMAZINE
     Indication: Nausea
     Route: 048
     Dates: end: 20250925
  4. RACECADOTRIL [Suspect]
     Active Substance: RACECADOTRIL
     Indication: Diarrhoea
     Route: 048
     Dates: end: 20250925
  5. CARBOPLATIN [Suspect]
     Active Substance: CARBOPLATIN
     Indication: Endometrial cancer
     Dosage: 2 WEEKS/3?6 TREATMENTS
     Route: 042
     Dates: start: 20250801, end: 20250919
  6. DOSTARLIMAB [Suspect]
     Active Substance: DOSTARLIMAB
     Indication: Endometrial cancer
     Dosage: 2 WEEKS/3?6 TREATMENTS
     Route: 042
     Dates: start: 20250801, end: 20250915
  7. LOPERAMIDE [Suspect]
     Active Substance: LOPERAMIDE
     Indication: Diarrhoea
     Dosage: LOPERAMIDE (HYDROCHLORIDE)
     Route: 048
     Dates: end: 20250925

REACTIONS (1)
  - Ischaemic stroke [Recovered/Resolved]

NARRATIVE: CASE EVENT DATE: 20250925
